FAERS Safety Report 4602956-0 (Version None)
Quarter: 2005Q1

REPORT INFORMATION
  Report Type: 
  Country: None (occurrence: None)
  Receive Date: 20050307
  Receipt Date: 20050225
  Transmission Date: 20050727
  Serious: No
  Sender: FDA-Public Use
  Company Number: 2005AC00360

PATIENT
  Age: 42 Year
  Sex: Male
  Weight: 105 kg

DRUGS (5)
  1. CRESTOR [Suspect]
     Dosage: 10 MG DAILY PO
     Route: 048
     Dates: start: 20041113, end: 20050210
  2. EFFEXOR XR [Concomitant]
  3. PROTHIADEN [Concomitant]
  4. TENORMIN [Concomitant]
  5. ZYLORIC ^FAES^ [Concomitant]

REACTIONS (1)
  - JAUNDICE CHOLESTATIC [None]
